FAERS Safety Report 5961489-X (Version None)
Quarter: 2008Q4

REPORT INFORMATION
  Report Type: 
  Country: None (occurrence: None)
  Receive Date: 20081121
  Receipt Date: 20081111
  Transmission Date: 20090506
  Serious: Yes (Hospitalization, Other)
  Sender: FDA-Public Use
  Company Number: US-ABBOTT-08P-163-0487098-00

PATIENT
  Sex: Female
  Weight: 55.842 kg

DRUGS (4)
  1. HUMIRA [Suspect]
     Indication: CROHN'S DISEASE
     Route: 058
     Dates: start: 20060101, end: 20081031
  2. HUMIRA [Suspect]
     Route: 058
     Dates: start: 20081031, end: 20081031
  3. HUMIRA [Suspect]
     Route: 058
     Dates: start: 20081101, end: 20081101
  4. HUMIRA [Suspect]
     Route: 058
     Dates: start: 20081109

REACTIONS (12)
  - ARTHRALGIA [None]
  - CROHN'S DISEASE [None]
  - DEHYDRATION [None]
  - DIZZINESS [None]
  - DRUG DELIVERY SYSTEM MALFUNCTION [None]
  - GASTRITIS [None]
  - HEADACHE [None]
  - MENORRHAGIA [None]
  - PAIN [None]
  - RED BLOOD CELL COUNT DECREASED [None]
  - RED BLOOD CELL SEDIMENTATION RATE INCREASED [None]
  - UTERINE MASS [None]
